FAERS Safety Report 4979595-5 (Version None)
Quarter: 2006Q2

REPORT INFORMATION
  Report Type: 
  Country: None (occurrence: None)
  Receive Date: 20060418
  Receipt Date: 20060407
  Transmission Date: 20061013
  Serious: Yes (Hospitalization)
  Sender: FDA-Public Use
  Company Number: 06H-087-0305771-00

PATIENT
  Age: 61 Year
  Sex: Male
  Weight: 43 kg

DRUGS (6)
  1. PRECEDEX [Suspect]
     Indication: SEDATION
     Dosage: INTRAVENOUS
     Route: 042
     Dates: start: 20060202, end: 20060203
  2. BICARBONATED RINGER'S SOLUTION [Concomitant]
  3. BROMHEXINE (BROMHEXINE) [Concomitant]
  4. CARBAZOCHROME SODIUM SULFONATE (CARBAZOCHROME SODIUM SULFONATE) [Concomitant]
  5. AMPICILLIN SULBACTAM (UNACID) [Concomitant]
  6. PIRENZEPINE (PIRENZEPINE) [Concomitant]

REACTIONS (1)
  - ATRIOVENTRICULAR BLOCK SECOND DEGREE [None]
